FAERS Safety Report 6639585-3 (Version None)
Quarter: 2010Q1

REPORT INFORMATION
  Report Type: 
  Country: None (occurrence: None)
  Receive Date: 20100318
  Receipt Date: 20100308
  Transmission Date: 20100710
  Serious: Yes (Disabling)
  Sender: FDA-Public Use
  Company Number: MT-ABBOTT-10P-103-0624303-00

PATIENT
  Age: 29 Year
  Sex: Male

DRUGS (1)
  1. REDUCTIL 10MG [Suspect]
     Indication: OBESITY
     Route: 048
     Dates: start: 20091101

REACTIONS (1)
  - PREMATURE EJACULATION [None]
